FAERS Safety Report 23107752 (Version 1)
Quarter: 2023Q4

REPORT INFORMATION
  Report Type: Spontaneous
  Country: EU (occurrence: EU)
  Receive Date: 20231026
  Receipt Date: 20231026
  Transmission Date: 20240110
  Serious: Yes (Other)
  Sender: FDA-Public Use
  Company Number: EU-MHRA-MED-202205271616574170-YK4MI

PATIENT

DRUGS (1)
  1. METHOTREXATE [Suspect]
     Active Substance: METHOTREXATE
     Indication: Rheumatoid arthritis
     Dosage: 50MG; ;
     Dates: start: 202111

REACTIONS (3)
  - Illness [Unknown]
  - Pulmonary congestion [Unknown]
  - Bone pain [Unknown]
